FAERS Safety Report 9750345 (Version 1)
Quarter: 2013Q4

REPORT INFORMATION
  Report Type: Spontaneous
  Country: US (occurrence: US)
  Receive Date: 20131212
  Receipt Date: 20131212
  Transmission Date: 20140711
  Serious: No
  Sender: FDA-Public Use
  Company Number: US-TEVA-398279USA

PATIENT
  Age: 26 Year
  Sex: Female

DRUGS (2)
  1. PARAGARD 380A [Suspect]
     Indication: CONTRACEPTION
     Route: 015
     Dates: start: 20120812
  2. PAXIL [Concomitant]
     Indication: ANXIETY

REACTIONS (2)
  - Metrorrhagia [Not Recovered/Not Resolved]
  - Pelvic pain [Recovered/Resolved]
